FAERS Safety Report 20163948 (Version 1)
Quarter: 2021Q4

REPORT INFORMATION
  Report Type: Report from Study
  Country: MX (occurrence: MX)
  Receive Date: 20211209
  Receipt Date: 20211209
  Transmission Date: 20220303
  Serious: Yes (Hospitalization)
  Sender: FDA-Public Use
  Company Number: MX-NOVARTISPH-NVSC2021MX234882

PATIENT
  Age: 77 Year
  Sex: Male
  Weight: 85 kg

DRUGS (5)
  1. METFORMIN HYDROCHLORIDE\VILDAGLIPTIN [Suspect]
     Active Substance: METFORMIN HYDROCHLORIDE\VILDAGLIPTIN
     Indication: Diabetes mellitus
     Dosage: 3 DOSAGE FORM, QD (50/850 MG) STARTED APPROXIMATELY 4 YEARS AGO AND STOPPED 4 YEARS AGO
     Route: 048
  2. METFORMIN HYDROCHLORIDE\VILDAGLIPTIN [Suspect]
     Active Substance: METFORMIN HYDROCHLORIDE\VILDAGLIPTIN
     Dosage: 2 DOSAGE FORM, QD (50/850 MG) STARTED APPROXIMATELY 4 YEARS AGO
     Route: 048
     Dates: end: 20210725
  3. METFORMIN HYDROCHLORIDE\VILDAGLIPTIN [Suspect]
     Active Substance: METFORMIN HYDROCHLORIDE\VILDAGLIPTIN
     Dosage: 2 DOSAGE FORM (50/850 MG), QD
     Route: 065
     Dates: start: 20210809
  4. FINASTERIDE [Concomitant]
     Active Substance: FINASTERIDE
     Indication: Prostate cancer
     Dosage: 1 DOSAGE FORM, ON MONDAY, WEDNESDAY AND FRIDAY, STARTED 5 YEARS AGO
     Route: 048
  5. FELODIPINE\METOPROLOL SUCCINATE [Concomitant]
     Active Substance: FELODIPINE\METOPROLOL SUCCINATE
     Indication: Hypertension
     Dosage: 1 DOSAGE FORM, QD, STARTED SEVERAL YEARS AGO
     Route: 048

REACTIONS (9)
  - Blood glucose increased [Recovered/Resolved]
  - COVID-19 [Recovered/Resolved with Sequelae]
  - Arteriosclerosis [Unknown]
  - Thyroid disorder [Not Recovered/Not Resolved]
  - Cardiac disorder [Not Recovered/Not Resolved]
  - Disorientation [Recovered/Resolved]
  - Malaise [Unknown]
  - Product dose omission issue [Unknown]
  - Off label use [Unknown]

NARRATIVE: CASE EVENT DATE: 20210725
